FAERS Safety Report 17213184 (Version 1)
Quarter: 2019Q4

REPORT INFORMATION
  Report Type: Report from Study
  Country: US (occurrence: US)
  Receive Date: 20191230
  Receipt Date: 20191230
  Transmission Date: 20200122
  Serious: No
  Sender: FDA-Public Use
  Company Number: US-IPSEN BIOPHARMACEUTICALS, INC.-2018-08680

PATIENT
  Age: 16 Year
  Sex: Male
  Weight: 36.3 kg

DRUGS (8)
  1. DYSPORT [Suspect]
     Active Substance: ABOBOTULINUMTOXINA
     Indication: MUSCLE SPASTICITY
     Dosage: 1000 U (QUADRICEPS (250 UNITS), BICEPS (200 UNITS),  FLEXOR CARPI RADIALIS (50 UNITS, UNDERDOSEE),
     Route: 030
     Dates: start: 20170801, end: 20170801
  2. DYSPORT [Suspect]
     Active Substance: ABOBOTULINUMTOXINA
     Indication: OFF LABEL USE
  3. BACLOFEN. [Concomitant]
     Active Substance: BACLOFEN
     Indication: MUSCLE SPASTICITY
     Route: 048
     Dates: start: 20120101
  4. PHENOL/ALCOHOL INJECTIONS [Concomitant]
     Route: 030
     Dates: start: 20170801, end: 20170801
  5. NEURONTIN [Concomitant]
     Active Substance: GABAPENTIN
     Indication: MUSCLE SPASTICITY
     Route: 048
     Dates: start: 20130801
  6. DYSPORT [Suspect]
     Active Substance: ABOBOTULINUMTOXINA
     Indication: MUSCLE SPASTICITY
  7. PHENOL/ALCOHOL INJECTIONS [Concomitant]
     Indication: MUSCLE SPASTICITY
     Route: 030
     Dates: start: 20171228, end: 20171228
  8. TIZANIDINE. [Concomitant]
     Active Substance: TIZANIDINE
     Indication: MUSCLE SPASTICITY
     Route: 048
     Dates: start: 20170101

REACTIONS (6)
  - Arthralgia [Recovered/Resolved]
  - Underdose [Unknown]
  - Haematoma muscle [Recovered/Resolved]
  - Back pain [Recovering/Resolving]
  - Oropharyngeal pain [Recovered/Resolved]
  - Off label use [Unknown]

NARRATIVE: CASE EVENT DATE: 20170801
